FAERS Safety Report 4303578-1 (Version None)
Quarter: 2004Q1

REPORT INFORMATION
  Report Type: 
  Country: None (occurrence: None)
  Receive Date: 20040223
  Receipt Date: 20040213
  Transmission Date: 20041129
  Serious: Yes (Other)
  Sender: FDA-Public Use
  Company Number: 2004-02-1070

PATIENT
  Sex: Male

DRUGS (2)
  1. ALBUTEROL [Suspect]
     Dosage: ORAL AER INH
     Route: 055
  2. COMBIVENT [Suspect]

REACTIONS (6)
  - HOARSENESS [None]
  - IMPAIRED HEALING [None]
  - LARYNGEAL CANCER [None]
  - LARYNGEAL MASS [None]
  - PHARMACEUTICAL PRODUCT COMPLAINT [None]
  - POST PROCEDURAL COMPLICATION [None]
